FAERS Safety Report 9207892 (Version 1)
Quarter: 2013Q2

REPORT INFORMATION
  Report Type: Spontaneous
  Country: IT (occurrence: IT)
  Receive Date: 20130403
  Receipt Date: 20130403
  Transmission Date: 20140414
  Serious: Yes (Hospitalization)
  Sender: FDA-Public Use
  Company Number: IT-BRISTOL-MYERS SQUIBB COMPANY-18713842

PATIENT
  Age: 84 Year
  Sex: Female

DRUGS (5)
  1. COUMADIN TABS 5 MG [Suspect]
     Indication: ATRIAL FIBRILLATION
     Route: 048
     Dates: start: 20110101, end: 20130313
  2. TELMISARTAN [Suspect]
     Route: 048
  3. DULOXETINE HCL [Concomitant]
  4. LASIX [Concomitant]
     Route: 048
  5. PANTORC [Concomitant]
     Indication: GASTRIC DISORDER

REACTIONS (4)
  - Anaemia [Unknown]
  - Haematoma [Unknown]
  - Hypotension [Unknown]
  - Deep vein thrombosis [Unknown]
